FAERS Safety Report 21451712 (Version 1)
Quarter: 2022Q4

REPORT INFORMATION
  Report Type: Spontaneous
  Country: FR (occurrence: FR)
  Receive Date: 20221013
  Receipt Date: 20221013
  Transmission Date: 20230113
  Serious: Yes (Life-Threatening)
  Sender: FDA-Public Use
  Company Number: None

PATIENT
  Age: 42 Year
  Sex: Male

DRUGS (5)
  1. RAMIPRIL [Suspect]
     Active Substance: RAMIPRIL
     Indication: Hypertension
     Dosage: NOT SPECIFIED. DURATION : 6 YEARS
     Dates: start: 2016, end: 20220715
  2. FOLIC ACID [Concomitant]
     Active Substance: FOLIC ACID
     Indication: Product used for unknown indication
  3. METHOTREXATE SODIUM [Concomitant]
     Active Substance: METHOTREXATE SODIUM
     Indication: Product used for unknown indication
  4. L THYROXINE ROCHE [Concomitant]
     Indication: Product used for unknown indication
  5. SORIATANE [Concomitant]
     Active Substance: ACITRETIN
     Indication: Psoriasis
     Dosage: NOT SPECIFIED.
     Dates: start: 202206, end: 202207

REACTIONS (1)
  - Angioedema [Recovered/Resolved]

NARRATIVE: CASE EVENT DATE: 20220715
